FAERS Safety Report 4630624-8 (Version None)
Quarter: 2005Q2

REPORT INFORMATION
  Report Type: 
  Country: None (occurrence: None)
  Receive Date: 20050408
  Receipt Date: 20050329
  Transmission Date: 20051028
  Serious: Yes (Other)
  Sender: FDA-Public Use
  Company Number: US-BRISTOL-MYERS SQUIBB COMPANY-12913448

PATIENT
  Age: 49 Year
  Sex: Male
  Weight: 55 kg

DRUGS (3)
  1. CISPLATIN [Suspect]
     Indication: PERITONEAL NEOPLASM
     Route: 042
     Dates: start: 20040312, end: 20040722
  2. MITOXANTRONE [Suspect]
     Indication: PERITONEAL NEOPLASM
     Dates: start: 20040312
  3. ALIMTA [Suspect]
     Indication: PERITONEAL NEOPLASM
     Dates: start: 20040412, end: 20040722

REACTIONS (2)
  - NEPHRITIS INTERSTITIAL [None]
  - PERITONITIS [None]
